FAERS Safety Report 5188504-8 (Version None)
Quarter: 2006Q4

REPORT INFORMATION
  Report Type: 
  Country: None (occurrence: None)
  Receive Date: 20061221
  Receipt Date: 20061215
  Transmission Date: 20070319
  Serious: Yes (Other)
  Sender: FDA-Public Use
  Company Number: PHEH2006US15298

PATIENT
  Age: 71 Year
  Sex: Male
  Weight: 90 kg

DRUGS (20)
  1. EXJADE [Suspect]
     Indication: IRON OVERLOAD
     Dosage: 2000 MG, QD
     Route: 048
     Dates: start: 20061129, end: 20061211
  2. SUDAFED 12 HOUR [Concomitant]
  3. VITAMIN D [Concomitant]
  4. LASIX [Concomitant]
     Dosage: 40 MG, UNK
  5. AMARYL [Concomitant]
     Dosage: 20 MG, UNK
  6. AVANDIA [Concomitant]
     Dosage: 8 MG, UNK
  7. TOPROL-XL [Concomitant]
     Dosage: 100 MG, UNK
  8. NEXIUM [Concomitant]
     Dosage: 40 MG, UNK
  9. AMBIEN [Concomitant]
     Dosage: 5 MG, PRN
  10. ZOLOFT [Concomitant]
     Dosage: 50 MG, UNK
  11. NASACORT [Concomitant]
  12. METAMUCIL [Concomitant]
  13. ALLOPURINOL [Concomitant]
  14. ARANESP [Concomitant]
  15. NEUPOGEN [Concomitant]
  16. DARVOCET-N 100 [Concomitant]
  17. ALLEGRA [Concomitant]
  18. ZYRTEC [Concomitant]
  19. PROCHLORPERAZINE [Concomitant]
     Dosage: 5 MG, UNK
  20. INDOMETHACIN [Concomitant]

REACTIONS (6)
  - BLOOD CREATININE INCREASED [None]
  - DYSHIDROSIS [None]
  - GENITAL RASH [None]
  - PAIN [None]
  - RASH [None]
  - SKIN ULCER [None]
